FAERS Safety Report 10215208 (Version 1)
Quarter: 2014Q2

REPORT INFORMATION
  Report Type: Report from Study
  Country: US (occurrence: US)
  Receive Date: 20140603
  Receipt Date: 20140603
  Transmission Date: 20141212
  Serious: Yes (Hospitalization)
  Sender: FDA-Public Use
  Company Number: PHEH2014US011085

PATIENT
  Age: 41 Year
  Sex: Female
  Weight: 97.96 kg

DRUGS (2)
  1. GILENYA [Suspect]
     Indication: MULTIPLE SCLEROSIS
     Dosage: 0.5 MG, QD
     Route: 048
     Dates: start: 201205
  2. ZOLOFT [Concomitant]

REACTIONS (8)
  - Crohn^s disease [Unknown]
  - Diarrhoea [Unknown]
  - Weight decreased [Unknown]
  - Pulmonary embolism [Unknown]
  - Kidney infection [Unknown]
  - Urine odour abnormal [Unknown]
  - Sleep disorder [Unknown]
  - Musculoskeletal discomfort [Unknown]
